FAERS Safety Report 6824696-X (Version None)
Quarter: 2010Q3

REPORT INFORMATION
  Report Type: 
  Country: None (occurrence: None)
  Receive Date: 20100708
  Receipt Date: 20081113
  Transmission Date: 20110219
  Serious: No
  Sender: FDA-Public Use
  Company Number: US-PFIZER INC-2006140290

PATIENT
  Sex: Female
  Weight: 77.11 kg

DRUGS (6)
  1. CHANTIX [Suspect]
     Indication: SMOKING CESSATION THERAPY
     Route: 048
     Dates: start: 20061101
  2. LIPITOR [Concomitant]
     Route: 048
  3. NEXIUM [Concomitant]
     Route: 048
  4. SPIRIVA [Concomitant]
     Indication: CHRONIC OBSTRUCTIVE PULMONARY DISEASE
     Route: 055
  5. ALBUTEROL [Concomitant]
     Indication: ASTHMA
     Route: 055
  6. ALL OTHER THERAPEUTIC PRODUCTS [Concomitant]
     Indication: ASTHMA
     Route: 055

REACTIONS (1)
  - DRUG INEFFECTIVE [None]
